FAERS Safety Report 7510253-9 (Version None)
Quarter: 2011Q2

REPORT INFORMATION
  Report Type: 
  Country: None (occurrence: None)
  Receive Date: 20110527
  Receipt Date: 20110516
  Transmission Date: 20111010
  Serious: Yes (Other)
  Sender: FDA-Public Use
  Company Number: JP-UCBSA-033261

PATIENT
  Sex: Male

DRUGS (13)
  1. PANCREAZE [Concomitant]
     Dosage: DOSAGE FORM: ECT
     Route: 048
  2. VITAMEDIN [Concomitant]
  3. XYZAL [Suspect]
     Indication: URTICARIA
     Route: 048
     Dates: start: 20110301, end: 20110430
  4. LANSOPRAZOLE [Concomitant]
  5. PROCYCLIN [Concomitant]
     Route: 048
  6. NIPOLAZIN [Concomitant]
     Route: 048
  7. KOLANTYL [Concomitant]
     Dosage: DOSAGE FORM: GRN
     Route: 048
  8. LOPERAMIDE HCL [Concomitant]
     Route: 048
  9. CEFAZOLIN SODIUM [Concomitant]
     Dosage: POR
     Route: 048
  10. GASCON [Concomitant]
     Route: 048
  11. MAGNESIUM SULFATE [Concomitant]
     Dosage: POR
     Route: 048
  12. JUVELA [Concomitant]
     Route: 048
  13. SIGMART [Concomitant]

REACTIONS (1)
  - LIVER DISORDER [None]
